FAERS Safety Report 9511908 (Version 1)
Quarter: 2013Q1

REPORT INFORMATION
  Report Type: Spontaneous
  Country: US (occurrence: None)
  Receive Date: 20130305
  Receipt Date: 20130305
  Transmission Date: 20140127
  Serious: Yes (Other)
  Sender: FDA-Public Use
  Company Number: D

PATIENT
  Age: 62 Year
  Sex: Female

DRUGS (2)
  1. REVLIMID (LENALIDOMIDE) (10 MILLIGRAM, CAPSULES)0 [Suspect]
     Indication: PLASMA CELL MYELOMA
     Route: 048
     Dates: start: 201004, end: 2010
  2. ENOXAPARIN (ENOXAPARIN) [Concomitant]

REACTIONS (1)
  - Thrombosis [None]
